FAERS Safety Report 7057195-3 (Version None)
Quarter: 2010Q4

REPORT INFORMATION
  Report Type: 
  Country: None (occurrence: None)
  Receive Date: 20101022
  Receipt Date: 20101018
  Transmission Date: 20110411
  Serious: Yes (Hospitalization)
  Sender: FDA-Public Use
  Company Number: US-BAYER-201022012BCC

PATIENT
  Age: 65 Year
  Sex: Male
  Weight: 93 kg

DRUGS (12)
  1. BAYER LOW DOSE [Suspect]
     Indication: ISCHAEMIC HEART DISEASE PROPHYLAXIS
     Dosage: TOTAL DAILY DOSE: 81 MG  UNIT DOSE: 81 MG
     Route: 048
     Dates: start: 20090901
  2. METOPROLOL TARTRATE [Concomitant]
     Route: 065
  3. ALLOPURINOL [Concomitant]
     Route: 065
  4. LIPITOR [Concomitant]
     Indication: HEART VALVE INCOMPETENCE
     Route: 065
  5. ACETAMINOPHEN [Concomitant]
     Route: 065
  6. TYLENOL W/ CODEINE NO. 3 [Concomitant]
     Route: 065
  7. COLCHICINE [Concomitant]
     Route: 065
  8. INDOMETHACIN [Concomitant]
     Route: 065
  9. NAPROXEN [Concomitant]
     Route: 065
  10. PREDNISONE [Concomitant]
     Route: 065
  11. CHOLESTEROL MEDICATION [Concomitant]
     Indication: BLOOD CHOLESTEROL INCREASED
     Route: 065
  12. EPIDURAL SHOTS [Concomitant]
     Indication: BACK PAIN
     Route: 008

REACTIONS (3)
  - GASTRIC ULCER [None]
  - HAEMATOCHEZIA [None]
  - HAEMATOCRIT DECREASED [None]
